FAERS Safety Report 4777556-2 (Version None)
Quarter: 2005Q3

REPORT INFORMATION
  Report Type: 
  Country: None (occurrence: None)
  Receive Date: 20050921
  Receipt Date: 20050913
  Transmission Date: 20060218
  Serious: No
  Sender: FDA-Public Use
  Company Number: 05H-078-0302421-00

PATIENT
  Age: 65 Year
  Sex: Male

DRUGS (3)
  1. HEPARIN SODIUM [Suspect]
     Indication: THROMBOLYSIS
  2. STREPTASE [Suspect]
     Indication: THROMBOLYSIS
  3. ANTIPLATELET AGENTS [Suspect]
     Indication: THROMBOLYSIS
     Dosage: ORAL
     Route: 048

REACTIONS (3)
  - BALANCE DISORDER [None]
  - COORDINATION ABNORMAL [None]
  - THALAMUS HAEMORRHAGE [None]
